FAERS Safety Report 18648607 (Version 3)
Quarter: 2021Q2

REPORT INFORMATION
  Report Type: Spontaneous
  Country: FR (occurrence: FR)
  Receive Date: 20201222
  Receipt Date: 20210421
  Transmission Date: 20210717
  Serious: Yes (Hospitalization)
  Sender: FDA-Public Use
  Company Number: FR-ROCHE-2737660

PATIENT
  Age: 43 Year
  Sex: Female

DRUGS (3)
  1. MABTHERA [Suspect]
     Active Substance: RITUXIMAB
     Indication: MULTIPLE SCLEROSIS
     Route: 042
     Dates: start: 201805
  2. ANAFRANIL [Concomitant]
     Active Substance: CLOMIPRAMINE HYDROCHLORIDE
     Indication: DEPRESSION
     Route: 048
  3. XATRAL LP [Concomitant]
     Active Substance: ALFUZOSIN
     Indication: DYSURIA
     Route: 048

REACTIONS (5)
  - Dizziness [Recovered/Resolved]
  - Pyelonephritis [Recovered/Resolved]
  - Fatigue [Unknown]
  - Off label use [Unknown]
  - Hot flush [Unknown]

NARRATIVE: CASE EVENT DATE: 20200925
